FAERS Safety Report 10730566 (Version 1)
Quarter: 2015Q1

REPORT INFORMATION
  Report Type: Spontaneous
  Country: US (occurrence: US)
  Receive Date: 20150122
  Receipt Date: 20150122
  Transmission Date: 20150721
  Serious: Yes (Other)
  Sender: FDA-Public Use
  Company Number: US-PFIZER INC-2014357309

PATIENT
  Age: 62 Year
  Weight: 74 kg

DRUGS (10)
  1. PROCET [Concomitant]
     Active Substance: ACETAMINOPHEN\HYDROCODONE BITARTRATE
     Dosage: UNK (10MG-300MG/15ML ORAL SOLUTION)
  2. MAGNESIUM OXIDE. [Concomitant]
     Active Substance: MAGNESIUM OXIDE
     Dosage: 400 MG, UNK
  3. MAGIC MOUTHWASH [Concomitant]
     Active Substance: DIPHENHYDRAMINE HYDROCHLORIDE\LIDOCAINE HYDROCHLORIDE\NYSTATIN
  4. MYCELEX [Concomitant]
     Active Substance: CLOTRIMAZOLE
     Dosage: UNK
  5. OXYCODONE [Concomitant]
     Active Substance: OXYCODONE
     Dosage: 5 MG, UNK
  6. INLYTA [Suspect]
     Active Substance: AXITINIB
     Indication: THYROID CANCER METASTATIC
     Dosage: 5 MG, 2X/DAY
     Route: 048
     Dates: start: 20141203, end: 20150106
  7. BACITRACIN. [Concomitant]
     Active Substance: BACITRACIN
     Dosage: UNK (500UNIT/GRAM TOPICAL OINTMENT)
     Route: 061
  8. LEVOTHYROXINE [Concomitant]
     Active Substance: LEVOTHYROXINE
     Dosage: 200 ?G, UNK
  9. LEVOTHYROXINE [Concomitant]
     Active Substance: LEVOTHYROXINE
     Dosage: 25 ?G, UNK
  10. RESTORIL [Concomitant]
     Active Substance: TEMAZEPAM
     Dosage: 7.5 MG, UNK

REACTIONS (8)
  - Hypophagia [Recovering/Resolving]
  - Product use issue [Unknown]
  - Oesophageal candidiasis [Recovering/Resolving]
  - Stomatitis [Recovering/Resolving]
  - Hypovolaemia [Recovering/Resolving]
  - Dyspnoea exertional [Unknown]
  - Oxygen saturation decreased [Unknown]
  - Oral candidiasis [Recovering/Resolving]

NARRATIVE: CASE EVENT DATE: 20150106
